FAERS Safety Report 9814835 (Version 2)
Quarter: 2014Q2

REPORT INFORMATION
  Report Type: Spontaneous
  Country: US (occurrence: US)
  Receive Date: 20140113
  Receipt Date: 20140519
  Transmission Date: 20141212
  Serious: Yes (Hospitalization)
  Sender: FDA-Public Use
  Company Number: US-GLAXOSMITHKLINE-A1055585A

PATIENT
  Age: 87 Year
  Sex: Male

DRUGS (21)
  1. ADVAIR [Suspect]
     Indication: ASTHMA
     Dosage: 1PUFF TWICE PER DAY
     Route: 055
     Dates: start: 200804
  2. ARMOUR THYROID [Concomitant]
  3. LANSOPRAZOLE [Concomitant]
  4. SPIRIVA [Concomitant]
  5. ALBUTEROL SULFATE [Concomitant]
  6. HYDROCODONE [Concomitant]
  7. GABAPENTIN [Concomitant]
  8. ALPRAZOLAM [Concomitant]
  9. KLOR-CON [Concomitant]
  10. GLUCOSAMINE [Concomitant]
  11. COLESEVELAM HYDROCHLORIDE [Concomitant]
  12. FENTANYL [Concomitant]
  13. PHENAZOPYRIDINE [Concomitant]
  14. LISINOPRIL [Concomitant]
  15. NITROSTAT [Concomitant]
  16. TRAVATAN [Concomitant]
  17. PRO-AIR [Concomitant]
  18. VENTOLIN [Concomitant]
  19. FISH OIL [Concomitant]
  20. CENTRUM SILVER [Concomitant]
  21. SALINE NASAL SPRAY [Concomitant]

REACTIONS (4)
  - Pneumonia [Unknown]
  - Chronic obstructive pulmonary disease [Unknown]
  - Dysphagia [Unknown]
  - Oral candidiasis [Unknown]
